FAERS Safety Report 7770203-7 (Version None)
Quarter: 2011Q3

REPORT INFORMATION
  Report Type: 
  Country: None (occurrence: None)
  Receive Date: 20110922
  Receipt Date: 20110210
  Transmission Date: 20111222
  Serious: No
  Sender: FDA-Public Use
  Company Number: US-ASTRAZENECA-2011SE08251

PATIENT
  Age: 49 Year
  Sex: Male

DRUGS (1)
  1. SEROQUEL XR [Suspect]
     Route: 048

REACTIONS (5)
  - HALLUCINATION, AUDITORY [None]
  - CATARACT [None]
  - HALLUCINATION [None]
  - SLEEP TALKING [None]
  - DRUG DOSE OMISSION [None]
